FAERS Safety Report 15751546 (Version 1)
Quarter: 2018Q4

REPORT INFORMATION
  Report Type: Spontaneous
  Country: CO (occurrence: CO)
  Receive Date: 20181221
  Receipt Date: 20181221
  Transmission Date: 20190205
  Serious: Yes (Other)
  Sender: FDA-Public Use
  Company Number: CO-BAYER-2018-241205

PATIENT
  Sex: Male

DRUGS (1)
  1. ASPIRIN ULTRA 500 MG [Suspect]
     Active Substance: ASPIRIN
     Dosage: 100 MG, QD

REACTIONS (1)
  - Cardiac disorder [None]
